FAERS Safety Report 5794808-8 (Version None)
Quarter: 2008Q2

REPORT INFORMATION
  Report Type: 
  Country: None (occurrence: None)
  Receive Date: 20080630
  Receipt Date: 20080623
  Transmission Date: 20081010
  Serious: Yes (Hospitalization)
  Sender: FDA-Public Use
  Company Number: A0734338A

PATIENT
  Age: 72 Year
  Sex: Female

DRUGS (3)
  1. COREG [Suspect]
     Dosage: 6.25MG TWICE PER DAY
     Route: 048
     Dates: start: 20060601
  2. CARVEDILOL [Suspect]
     Dosage: 6.25MG TWICE PER DAY
     Route: 048
     Dates: start: 20060601
  3. NO CONCURRENT MEDICATION [Concomitant]

REACTIONS (4)
  - BLOOD PRESSURE INCREASED [None]
  - COLON NEOPLASM [None]
  - DRUG INEFFECTIVE [None]
  - MALAISE [None]
